FAERS Safety Report 4714729-9 (Version None)
Quarter: 2005Q3

REPORT INFORMATION
  Report Type: 
  Country: None (occurrence: None)
  Receive Date: 20050715
  Receipt Date: 20050708
  Transmission Date: 20060218
  Serious: Yes (Death)
  Sender: FDA-Public Use
  Company Number: US-BRISTOL-MYERS SQUIBB COMPANY-13033493

PATIENT
  Sex: Female

DRUGS (2)
  1. GLUCOVANCE [Suspect]
     Dosage: DOSAGE FORM = 5 MG/500 MG
  2. KLOTRIX TABS 10 MEQ [Suspect]

REACTIONS (1)
  - DEATH [None]
